FAERS Safety Report 6333828-1 (Version None)
Quarter: 2009Q3

REPORT INFORMATION
  Report Type: 
  Country: None (occurrence: None)
  Receive Date: 20090829
  Receipt Date: 20090605
  Transmission Date: 20100115
  Serious: No
  Sender: FDA-Public Use
  Company Number: US-ABBOTT-09P-163-0578650-00

PATIENT
  Sex: Female

DRUGS (7)
  1. SIMCOR [Suspect]
     Indication: BLOOD CHOLESTEROL INCREASED
     Dosage: UNKNOWN DOSE, TAKING SAMPLES GIVEN FROM MD OFFICE.
     Route: 048
     Dates: start: 20090603
  2. SOTALOL HYDROCHLORIDE [Concomitant]
     Indication: ATRIAL FIBRILLATION
  3. ACIPHEX [Concomitant]
     Indication: GASTROOESOPHAGEAL REFLUX DISEASE
  4. ACIPHEX [Concomitant]
     Indication: GASTRIC DISORDER
  5. METOCLOPRAMIDE (GENERIC REGLAN) [Concomitant]
     Indication: DRUG USE FOR UNKNOWN INDICATION
  6. CREON [Concomitant]
     Indication: PANCREATIC ENZYMES
  7. SYNTHROID [Concomitant]
     Indication: HYPOTHYROIDISM

REACTIONS (2)
  - FLUSHING [None]
  - SKIN BURNING SENSATION [None]
